FAERS Safety Report 11392478 (Version 1)
Quarter: 2015Q3

REPORT INFORMATION
  Report Type: Spontaneous
  Country: US (occurrence: US)
  Receive Date: 20150818
  Receipt Date: 20150818
  Transmission Date: 20151125
  Serious: Yes (Other)
  Sender: FDA-Public Use
  Company Number: PHHY2015US099202

PATIENT
  Age: 68 Year
  Sex: Female

DRUGS (5)
  1. ONDANSETRON [Concomitant]
     Active Substance: ONDANSETRON
     Indication: VOMITING
  2. DEXAMETHASONE. [Suspect]
     Active Substance: DEXAMETHASONE
     Indication: MALIGNANT BOWEL OBSTRUCTION
     Route: 065
  3. OCTREOTIDE. [Suspect]
     Active Substance: OCTREOTIDE
     Indication: MALIGNANT BOWEL OBSTRUCTION
     Route: 065
  4. HALOPERIDOL. [Concomitant]
     Active Substance: HALOPERIDOL
     Indication: PRODUCT USED FOR UNKNOWN INDICATION
     Route: 065
  5. ONDANSETRON [Concomitant]
     Active Substance: ONDANSETRON
     Indication: NAUSEA
     Route: 065

REACTIONS (3)
  - Drug ineffective [Unknown]
  - Product use issue [Unknown]
  - Malignant neoplasm progression [Unknown]
